FAERS Safety Report 18924480 (Version 3)
Quarter: 2021Q2

REPORT INFORMATION
  Report Type: Report from Study
  Country: None (occurrence: TR)
  Receive Date: 20210222
  Receipt Date: 20210408
  Transmission Date: 20210717
  Serious: Yes (Hospitalization)
  Sender: FDA-Public Use
  Company Number: TR-ABBVIE-21K-161-3782216-00

PATIENT
  Age: 91 Year
  Sex: Male
  Weight: 88 kg

DRUGS (9)
  1. NEXIUM [Concomitant]
     Active Substance: ESOMEPRAZOLE MAGNESIUM
     Indication: PROPHYLAXIS
     Route: 048
     Dates: start: 20180418
  2. MADOPAR HBS [Concomitant]
     Active Substance: BENSERAZIDE HYDROCHLORIDE\LEVODOPA
     Indication: PARKINSON^S DISEASE
     Route: 048
     Dates: start: 20180418
  3. GUTRON [Concomitant]
     Active Substance: MIDODRINE HYDROCHLORIDE
     Indication: ORTHOSTATIC HYPOTENSION
     Route: 048
     Dates: start: 2010
  4. COVID?19 VACCINE NOS. [Concomitant]
     Active Substance: COVID-19 VACCINE NOS
     Dosage: SARS?COV?2 VACCINE?SECOND DOSE WAS ADMINISTERED
     Route: 030
  5. MELATONINE [Concomitant]
     Active Substance: MELATONIN
     Indication: PARKINSON^S DISEASE
     Route: 048
  6. DUODOPA [Suspect]
     Active Substance: CARBIDOPA\LEVODOPA
     Indication: PARKINSON^S DISEASE
     Dosage: MORNING DOSE (ML): 10.00 CONTINUOUS DOSE (ML): 5.00 EXTRA DOSE (ML): 1.00
     Route: 050
     Dates: start: 20180418
  7. COVID?19 VACCINE NOS. [Concomitant]
     Active Substance: COVID-19 VACCINE NOS
     Indication: COVID-19 IMMUNISATION
     Dosage: SARS?COV?2 VACCINE?FIRST DOSE WAS ADMINISTERED
     Route: 030
  8. DUODOPA [Suspect]
     Active Substance: CARBIDOPA\LEVODOPA
  9. MOTILIUM [Concomitant]
     Active Substance: DOMPERIDONE
     Indication: CONSTIPATION
     Route: 048
     Dates: start: 2013

REACTIONS (1)
  - C-reactive protein increased [Recovered/Resolved]

NARRATIVE: CASE EVENT DATE: 20210217
